FAERS Safety Report 20030065 (Version 2)
Quarter: 2021Q4

REPORT INFORMATION
  Report Type: Spontaneous
  Country: GB (occurrence: GB)
  Receive Date: 20211103
  Receipt Date: 20211106
  Transmission Date: 20220303
  Serious: Yes (Disabling, Other)
  Sender: FDA-Public Use
  Company Number: None

PATIENT
  Age: 49 Year
  Sex: Female
  Weight: 73.02 kg

DRUGS (17)
  1. NAPROXEN [Suspect]
     Active Substance: NAPROXEN
     Indication: Arthritis
     Route: 048
     Dates: start: 20210102, end: 20210116
  2. AMITRIPTYLINE [Concomitant]
     Active Substance: AMITRIPTYLINE
  3. ATORVASTATIN [Concomitant]
     Active Substance: ATORVASTATIN
  4. ASPIRIN [Concomitant]
     Active Substance: ASPIRIN
  5. BISOPROLOL FUMARATE [Concomitant]
     Active Substance: BISOPROLOL FUMARATE
  6. CALCIUM [Concomitant]
     Active Substance: CALCIUM
  7. FLUDROCORTISONE ACETATE [Concomitant]
     Active Substance: FLUDROCORTISONE ACETATE
  8. MAGNESIUM [Concomitant]
     Active Substance: MAGNESIUM
  9. INSULIN ASPART [Concomitant]
     Active Substance: INSULIN ASPART
  10. ESTRADIOL [Concomitant]
     Active Substance: ESTRADIOL
  11. PROCHLORPERAZINE [Concomitant]
     Active Substance: PROCHLORPERAZINE
  12. ALBUTEROL [Concomitant]
     Active Substance: ALBUTEROL
  13. TESTOSTERONE [Concomitant]
     Active Substance: TESTOSTERONE
  14. MENAQUINONE 6 [Concomitant]
     Active Substance: MENAQUINONE 6
  15. VITAMIN D3 [Concomitant]
     Active Substance: CHOLECALCIFEROL
  16. ZINC [Concomitant]
     Active Substance: ZINC
  17. OMEPRAZOLE [Concomitant]
     Active Substance: OMEPRAZOLE

REACTIONS (5)
  - Joint swelling [Unknown]
  - Acute kidney injury [Unknown]
  - Product administration error [Unknown]
  - Musculoskeletal disorder [Unknown]
  - Hypertension [Unknown]

NARRATIVE: CASE EVENT DATE: 20210115
